FAERS Safety Report 18209415 (Version 2)
Quarter: 2020Q3

REPORT INFORMATION
  Report Type: Spontaneous
  Country: US (occurrence: US)
  Receive Date: 20200828
  Receipt Date: 20200910
  Transmission Date: 20201103
  Serious: Yes (Death)
  Sender: FDA-Public Use
  Company Number: US-CATALYST PHARMACEUTICALS, INC-2020CAT00400

PATIENT
  Age: 84 Year
  Sex: Male
  Weight: 65.76 kg

DRUGS (3)
  1. UNSPECIFIED MEDICATION TO HELP PREVENT SEIZURES [Concomitant]
     Dosage: UNK, 1X/DAY
  2. FIRDAPSE [Suspect]
     Active Substance: AMIFAMPRIDINE PHOSPHATE
     Dosage: 80 MG, DAILY
     Route: 048
  3. FIRDAPSE [Suspect]
     Active Substance: AMIFAMPRIDINE PHOSPHATE
     Indication: MYASTHENIC SYNDROME
     Dosage: 80 MG, DAILY
     Route: 048
     Dates: start: 201809

REACTIONS (3)
  - Product dose omission issue [Not Recovered/Not Resolved]
  - Death [Fatal]
  - Hypersomnia [Not Recovered/Not Resolved]

NARRATIVE: CASE EVENT DATE: 20200811
